FAERS Safety Report 9807469 (Version 2)
Quarter: 2015Q1

REPORT INFORMATION
  Report Type: Report from Study
  Country: US (occurrence: US)
  Receive Date: 20140110
  Receipt Date: 20150205
  Transmission Date: 20150721
  Serious: Yes (Other)
  Sender: FDA-Public Use
  Company Number: US-ROCHE-1329358

PATIENT
  Age: 60 Year
  Sex: Female
  Weight: 79 kg

DRUGS (8)
  1. THYROID [Concomitant]
     Active Substance: LEVOTHYROXINE\LIOTHYRONINE
     Indication: HYPOTHYROIDISM
     Route: 048
  2. TRAMADOL [Concomitant]
     Active Substance: TRAMADOL
  3. CENESTIN [Concomitant]
     Active Substance: ESTROGENS, CONJUGATED SYNTHETIC A
     Route: 065
  4. NUTROPIN AQ [Suspect]
     Active Substance: SOMATROPIN
     Indication: GROWTH HORMONE DEFICIENCY
     Route: 058
  5. LORAZEPAM. [Concomitant]
     Active Substance: LORAZEPAM
  6. NUTROPIN AQ [Suspect]
     Active Substance: SOMATROPIN
     Route: 058
  7. SLOW-K [Concomitant]
     Active Substance: POTASSIUM CHLORIDE
  8. KETOPROFEN. [Concomitant]
     Active Substance: KETOPROFEN

REACTIONS (7)
  - Deafness [Not Recovered/Not Resolved]
  - Spinal column stenosis [Unknown]
  - Road traffic accident [Unknown]
  - Feeling abnormal [Unknown]
  - Head injury [Not Recovered/Not Resolved]
  - Tooth abscess [Unknown]
  - Growth accelerated [Unknown]

NARRATIVE: CASE EVENT DATE: 201310
